FAERS Safety Report 4673113-7 (Version None)
Quarter: 2005Q2

REPORT INFORMATION
  Report Type: 
  Country: None (occurrence: None)
  Receive Date: 20050524
  Receipt Date: 20050524
  Transmission Date: 20051028
  Serious: Yes (Other)
  Sender: FDA-Public Use
  Company Number: None

PATIENT
  Age: 63 Year
  Sex: Female
  Weight: 54.4316 kg

DRUGS (2)
  1. PACERONE [Suspect]
     Dosage: 200 MG TWICE A DAY ORAL
     Route: 048
     Dates: start: 20040917, end: 20041016
  2. PACERONE [Suspect]
     Dosage: 200 MG TWICE A DAY ORAL
     Route: 048
     Dates: start: 20041016, end: 20041206

REACTIONS (2)
  - HYPERTHYROIDISM [None]
  - HYPOTHYROIDISM [None]
